FAERS Safety Report 22398952 (Version 1)
Quarter: 2023Q2

REPORT INFORMATION
  Report Type: Spontaneous
  Country: US (occurrence: US)
  Receive Date: 20230602
  Receipt Date: 20230602
  Transmission Date: 20230722
  Serious: Yes (Hospitalization, Other)
  Sender: FDA-Public Use
  Company Number: US-MLMSERVICE-20230522-4296864-1

PATIENT
  Age: 60 Year
  Sex: Male

DRUGS (1)
  1. MONTELUKAST [Suspect]
     Active Substance: MONTELUKAST SODIUM
     Indication: Asthma

REACTIONS (2)
  - Eosinophilic granulomatosis with polyangiitis [Recovered/Resolved]
  - Diarrhoea [Recovered/Resolved]
